FAERS Safety Report 22669290 (Version 8)
Quarter: 2024Q2

REPORT INFORMATION
  Report Type: Report from Study
  Country: CA (occurrence: CA)
  Receive Date: 20230704
  Receipt Date: 20240523
  Transmission Date: 20240716
  Serious: Yes (Other)
  Sender: FDA-Public Use
  Company Number: CA-TAKEDA-2023TUS005759

PATIENT
  Age: 23 Year
  Sex: Female

DRUGS (2)
  1. VEDOLIZUMAB [Suspect]
     Active Substance: VEDOLIZUMAB
     Indication: Crohn^s disease
     Dosage: 300 MILLIGRAM
     Route: 042
     Dates: start: 20221118
  2. VEDOLIZUMAB [Suspect]
     Active Substance: VEDOLIZUMAB
     Dosage: 300 MILLIGRAM
     Route: 042
     Dates: start: 20230116, end: 20240218

REACTIONS (22)
  - Crohn^s disease [Unknown]
  - Nightmare [Unknown]
  - Infusion site erythema [Unknown]
  - Infusion site pruritus [Unknown]
  - Dermatitis contact [Unknown]
  - Rash macular [Unknown]
  - Mouth ulceration [Unknown]
  - Skin ulcer [Unknown]
  - Abscess [Unknown]
  - Diarrhoea [Unknown]
  - Psoriasis [Unknown]
  - Skin mass [Unknown]
  - Therapy non-responder [Unknown]
  - Dizziness [Unknown]
  - Abdominal pain [Unknown]
  - Ear infection [Not Recovered/Not Resolved]
  - Vomiting [Unknown]
  - Anal fissure [Unknown]
  - Haemorrhoids [Unknown]
  - Rash [Unknown]
  - Arthralgia [Unknown]
  - Influenza [Unknown]

NARRATIVE: CASE EVENT DATE: 20230116
